FAERS Safety Report 21594897 (Version 1)
Quarter: 2022Q4

REPORT INFORMATION
  Report Type: Spontaneous
  Country: DE (occurrence: DE)
  Receive Date: 20221115
  Receipt Date: 20221115
  Transmission Date: 20230113
  Serious: Yes (Other)
  Sender: FDA-Public Use
  Company Number: DE-TORRENT-00023639

PATIENT
  Sex: Female

DRUGS (2)
  1. VENLAFAXINE HYDROCHLORIDE [Interacting]
     Active Substance: VENLAFAXINE HYDROCHLORIDE
     Indication: Depression
     Dosage: 113 MILLIGRAM, ONCE A DAY (112.5 MG DAILY DOSAGE)
     Route: 065
     Dates: start: 20210901
  2. VENLAFAXINE HYDROCHLORIDE [Interacting]
     Active Substance: VENLAFAXINE HYDROCHLORIDE
     Indication: Social anxiety disorder

REACTIONS (10)
  - Loss of consciousness [Unknown]
  - Memory impairment [Unknown]
  - Speech disorder [Unknown]
  - Lacrimation decreased [Unknown]
  - Somnolence [Unknown]
  - Personality change [Unknown]
  - Trance [Unknown]
  - Alcohol interaction [Unknown]
  - Feeling abnormal [Unknown]
  - Disorientation [Unknown]
